FAERS Safety Report 8018971-3 (Version None)
Quarter: 2012Q1

REPORT INFORMATION
  Report Type: 
  Country: None (occurrence: None)
  Receive Date: 20120103
  Receipt Date: 20111229
  Transmission Date: 20120608
  Serious: Yes (Other)
  Sender: FDA-Public Use
  Company Number: US-PFIZER INC-2011316582

PATIENT
  Sex: Male
  Weight: 13.6 kg

DRUGS (1)
  1. GENOTROPIN [Suspect]
     Indication: GROWTH HORMONE DEFICIENCY
     Dosage: 0.5 MG, 1X/DAY
     Route: 058
     Dates: end: 20111001

REACTIONS (2)
  - PAPILLOEDEMA [None]
  - INTRACRANIAL PRESSURE INCREASED [None]
